FAERS Safety Report 8603190-X (Version None)
Quarter: 2012Q3

REPORT INFORMATION
  Report Type: 
  Country: None (occurrence: None)
  Receive Date: 20120817
  Receipt Date: 20120813
  Transmission Date: 20120928
  Serious: Yes (Hospitalization, Other)
  Sender: FDA-Public Use
  Company Number: US-TEVA-353919USA

PATIENT
  Age: 65 Year
  Sex: Male

DRUGS (4)
  1. VANCOMYCIN [Suspect]
     Indication: EVIDENCE BASED TREATMENT
     Route: 065
  2. METRONIDAZOLE [Concomitant]
     Indication: EVIDENCE BASED TREATMENT
     Route: 065
  3. LEVOFLOXACIN (LEVAQUIN) [Suspect]
     Indication: EVIDENCE BASED TREATMENT
     Route: 065
  4. FLUCONAZOLE [Concomitant]
     Indication: EVIDENCE BASED TREATMENT
     Route: 065

REACTIONS (5)
  - MENTAL STATUS CHANGES [None]
  - DRUG RASH WITH EOSINOPHILIA AND SYSTEMIC SYMPTOMS [None]
  - OEDEMA MUCOSAL [None]
  - SWOLLEN TONGUE [None]
  - METABOLIC ACIDOSIS [None]
